FAERS Safety Report 6948174-2 (Version None)
Quarter: 2010Q3

REPORT INFORMATION
  Report Type: 
  Country: None (occurrence: None)
  Receive Date: 20100828
  Receipt Date: 20091021
  Transmission Date: 20110219
  Serious: No
  Sender: FDA-Public Use
  Company Number: US-ABBOTT-09P-163-0604616-00

PATIENT
  Sex: Male
  Weight: 80.812 kg

DRUGS (4)
  1. NIASPAN [Suspect]
     Indication: LOW DENSITY LIPOPROTEIN INCREASED
     Dates: start: 20091015
  2. CRESTOR [Concomitant]
     Indication: BLOOD CHOLESTEROL
  3. MIRAPEX [Concomitant]
     Indication: RESTLESS LEGS SYNDROME
  4. PROTONIX [Concomitant]
     Indication: GASTRIC DISORDER

REACTIONS (4)
  - FLUSHING [None]
  - PARAESTHESIA [None]
  - PRURITUS [None]
  - RASH [None]
